FAERS Safety Report 24367529 (Version 1)
Quarter: 2024Q3

REPORT INFORMATION
  Report Type: Spontaneous
  Country: US (occurrence: US)
  Receive Date: 20240926
  Receipt Date: 20240926
  Transmission Date: 20241017
  Serious: Yes (Other)
  Sender: AMGEN
  Company Number: US-AMGEN-USASP2024189496

PATIENT
  Age: 63 Year
  Sex: Male

DRUGS (6)
  1. PREDNISONE [Suspect]
     Active Substance: PREDNISONE
     Indication: Autoimmune haemolytic anaemia
     Dosage: 1 MILLIGRAM/KILOGRAM, QD (HIGHDOSE)
     Route: 065
     Dates: start: 202304
  2. PREDNISONE [Suspect]
     Active Substance: PREDNISONE
     Dosage: 0.75 MILLIGRAM/KILOGRAM, QD
     Route: 065
     Dates: start: 2023
  3. PREDNISONE [Suspect]
     Active Substance: PREDNISONE
     Dosage: 0.04 MILLIGRAM/KILOGRAM, QD
     Route: 065
     Dates: start: 202307, end: 20230811
  4. PREDNISONE [Suspect]
     Active Substance: PREDNISONE
     Dosage: 0.32 MILLIGRAM/KILOGRAM, QD
     Route: 065
     Dates: start: 20230905
  5. PREDNISONE [Suspect]
     Active Substance: PREDNISONE
     Dosage: TAPERED OFF
     Route: 065
     Dates: start: 20231026
  6. RITUXIMAB [Suspect]
     Active Substance: RITUXIMAB
     Indication: Autoimmune haemolytic anaemia
     Dosage: UNK (COURSE OF FOUR CYCLES)
     Route: 065
     Dates: start: 202307, end: 20230804

REACTIONS (3)
  - Deep vein thrombosis [Unknown]
  - Autoimmune haemolytic anaemia [Recovering/Resolving]
  - Off label use [Unknown]

NARRATIVE: CASE EVENT DATE: 20230101
